FAERS Safety Report 25301901 (Version 1)
Quarter: 2025Q2

REPORT INFORMATION
  Report Type: Spontaneous
  Country: US (occurrence: US)
  Receive Date: 20250512
  Receipt Date: 20250512
  Transmission Date: 20250717
  Serious: No
  Sender: Kenvue
  Company Number: US-KENVUE-20250405892

PATIENT
  Sex: Male

DRUGS (4)
  1. ZYRTEC [Suspect]
     Active Substance: CETIRIZINE HYDROCHLORIDE
     Indication: Sinus congestion
     Dosage: 1 DOSAGE FORM, ONCE A DAY, PROBABLY 7 YEARS AGO
     Route: 065
  2. ZYRTEC [Suspect]
     Active Substance: CETIRIZINE HYDROCHLORIDE
     Indication: Nasal congestion
  3. SUDAFED 24 HOUR [Concomitant]
     Active Substance: PSEUDOEPHEDRINE HYDROCHLORIDE
     Indication: Sinus congestion
     Dosage: 1 DOSAGE FORM, ONCE A DAY, PROBABLY FOR 5 YEARS
     Route: 065
  4. SUDAFED 24 HOUR [Concomitant]
     Active Substance: PSEUDOEPHEDRINE HYDROCHLORIDE
     Indication: Nasal congestion

REACTIONS (1)
  - Product use in unapproved indication [Unknown]
